FAERS Safety Report 4544863-8 (Version None)
Quarter: 2005Q1

REPORT INFORMATION
  Report Type: 
  Country: None (occurrence: None)
  Receive Date: 20050105
  Receipt Date: 20041224
  Transmission Date: 20050727
  Serious: Yes (Hospitalization)
  Sender: FDA-Public Use
  Company Number: JP-BRISTOL-MYERS SQUIBB COMPANY-12806089

PATIENT
  Age: 63 Year
  Sex: Female

DRUGS (7)
  1. VIDEX EC [Suspect]
     Indication: HIV INFECTION
     Route: 048
     Dates: start: 20010417
  2. STOCRIN CAPS [Suspect]
     Indication: HIV INFECTION
     Route: 048
     Dates: start: 20001019
  3. EPIVIR [Suspect]
     Indication: HIV INFECTION
     Route: 048
     Dates: start: 20020423
  4. VIDEX [Concomitant]
     Indication: HIV INFECTION
     Route: 048
     Dates: start: 20001019, end: 20010416
  5. GASTER [Concomitant]
     Route: 048
     Dates: start: 20001011, end: 20030828
  6. AMOBAN [Concomitant]
     Route: 048
     Dates: start: 20021001
  7. BEZATOL SR [Concomitant]
     Route: 048
     Dates: start: 20030422, end: 20030828

REACTIONS (1)
  - DIABETES MELLITUS [None]
